FAERS Safety Report 22654023 (Version 1)
Quarter: 2023Q2

REPORT INFORMATION
  Report Type: Spontaneous
  Country: US (occurrence: None)
  Receive Date: 20230628
  Receipt Date: 20230628
  Transmission Date: 20230722
  Serious: No
  Sender: FDA-Public Use
  Company Number: None

PATIENT

DRUGS (2)
  1. FUROSEMIDE [Suspect]
     Active Substance: FUROSEMIDE
     Route: 042
  2. BUMETANIDE [Suspect]
     Active Substance: BUMETANIDE
     Route: 042

REACTIONS (4)
  - Product label confusion [None]
  - Product packaging confusion [None]
  - Wrong product stored [None]
  - Product colour issue [None]
